FAERS Safety Report 24021300 (Version 1)
Quarter: 2024Q2

REPORT INFORMATION
  Report Type: Report from Study
  Country: US (occurrence: US)
  Receive Date: 20240627
  Receipt Date: 20240627
  Transmission Date: 20240716
  Serious: Yes (Hospitalization)
  Sender: FDA-Public Use
  Company Number: US-MTPC-MTDA2024-0013354

PATIENT
  Sex: Male

DRUGS (2)
  1. RADICAVA ORS [Suspect]
     Active Substance: EDARAVONE
     Indication: Amyotrophic lateral sclerosis
     Dosage: 5 MILLILITER, QD 10 OUT OF 14 DAYS THEN 14 DAYS OFF
     Route: 048
     Dates: start: 202405
  2. RADICAVA ORS [Suspect]
     Active Substance: EDARAVONE
     Indication: Amyotrophic lateral sclerosis
     Dosage: 5 MILLILITER, QD 10 OUT OF 14 DAYS THEN 14 DAYS OFF
     Route: 048
     Dates: start: 202405

REACTIONS (4)
  - Incoherent [Unknown]
  - Dehydration [Unknown]
  - Listless [Unknown]
  - Abdominal pain upper [Unknown]
